FAERS Safety Report 6633268-1 (Version None)
Quarter: 2010Q1

REPORT INFORMATION
  Report Type: 
  Country: None (occurrence: None)
  Receive Date: 20100312
  Receipt Date: 20100301
  Transmission Date: 20100710
  Serious: Yes (Other)
  Sender: FDA-Public Use
  Company Number: US-PFIZER INC-2010027139

PATIENT
  Sex: Female

DRUGS (1)
  1. DILANTIN [Suspect]
     Indication: POST-TRAUMATIC EPILEPSY
     Dosage: 300 MG, 1X/DAY
     Dates: start: 20090101, end: 20100101

REACTIONS (1)
  - APLASTIC ANAEMIA [None]
